FAERS Safety Report 11909878 (Version 1)
Quarter: 2016Q1

REPORT INFORMATION
  Report Type: Spontaneous
  Country: US (occurrence: US)
  Receive Date: 20160112
  Receipt Date: 20160112
  Transmission Date: 20160526
  Serious: No
  Sender: FDA-Public Use
  Company Number: US-TEVA-619711USA

PATIENT
  Age: 76 Year
  Sex: Male
  Weight: 83.08 kg

DRUGS (8)
  1. LECITHIN [Concomitant]
     Active Substance: LECITHIN
  2. OMEGA [Concomitant]
     Active Substance: CONVALLARIA MAJALIS\CRATAEGUS LAEVIGATA LEAF\PROXYPHYLLINE
  3. PROAIR RESPICLICK [Suspect]
     Active Substance: ALBUTEROL SULFATE
     Indication: EMPHYSEMA
     Route: 065
     Dates: start: 20151203
  4. FISH OIL [Concomitant]
     Active Substance: FISH OIL
  5. PROBIOTICA [Concomitant]
     Active Substance: PROBIOTICS NOS
  6. TEMAZEPAM. [Concomitant]
     Active Substance: TEMAZEPAM
  7. VITAMIN C [Concomitant]
     Active Substance: ASCORBIC ACID
  8. VITAMIN D3 [Concomitant]
     Active Substance: CHOLECALCIFEROL

REACTIONS (5)
  - Feeling abnormal [Not Recovered/Not Resolved]
  - Product use issue [Not Recovered/Not Resolved]
  - Dyspnoea [Unknown]
  - Headache [Unknown]
  - Headache [Not Recovered/Not Resolved]

NARRATIVE: CASE EVENT DATE: 201512
